FAERS Safety Report 24617075 (Version 2)
Quarter: 2025Q4

REPORT INFORMATION
  Report Type: Spontaneous
  Country: US (occurrence: US)
  Receive Date: 20241114
  Receipt Date: 20251104
  Transmission Date: 20260118
  Serious: Yes (Hospitalization, Other)
  Sender: COOPERSURGICAL
  Company Number: US-COOPERSURGICAL, INC.-2024CPS003365

PATIENT
  Age: 32 Year
  Sex: Female
  Weight: 54.422 kg

DRUGS (1)
  1. PARAGARD T 380A [Suspect]
     Active Substance: COPPER
     Indication: Contraception
     Dosage: UNK
     Route: 015
     Dates: start: 20150102, end: 20200610

REACTIONS (39)
  - Reproductive complication associated with device [Not Recovered/Not Resolved]
  - Infertility female [Not Recovered/Not Resolved]
  - Salpingectomy [Recovered/Resolved]
  - Perihepatitis [Unknown]
  - Enteritis infectious [Unknown]
  - Hydronephrosis [Recovered/Resolved]
  - Tubo-ovarian abscess [Recovering/Resolving]
  - Ascites [Recovered/Resolved]
  - Ovarian cyst [Recovered/Resolved]
  - Laparoscopy [Recovered/Resolved]
  - Pleural effusion [Recovering/Resolving]
  - Surgery [Recovered/Resolved]
  - Laparotomy [Recovered/Resolved]
  - Omentectomy [Recovered/Resolved]
  - Abscess drainage [Recovered/Resolved]
  - Postoperative ileus [Recovered/Resolved]
  - Enterorrhaphy [Recovered/Resolved]
  - Fallopian tube disorder [Recovered/Resolved]
  - Adhesiolysis [Recovered/Resolved]
  - Device breakage [Recovered/Resolved]
  - Foreign body in reproductive tract [Recovered/Resolved]
  - Complication of device removal [Recovered/Resolved]
  - Embedded device [Recovered/Resolved]
  - Peritonitis [Recovering/Resolving]
  - Sepsis [Recovered/Resolved]
  - Uterine perforation [Recovered/Resolved]
  - Intestinal perforation [Recovered/Resolved]
  - Abdominal adhesions [Recovered/Resolved]
  - Peritoneal adhesions [Recovered/Resolved]
  - Pelvic abscess [Recovered/Resolved]
  - Abdominal abscess [Recovering/Resolving]
  - Procedural haemorrhage [Recovered/Resolved]
  - Uterine cervical laceration [Recovered/Resolved]
  - Diarrhoea [Recovered/Resolved]
  - Musculoskeletal chest pain [Unknown]
  - Coital bleeding [Unknown]
  - Device expulsion [Recovered/Resolved]
  - Menstruation irregular [Recovered/Resolved]
  - Abdominal pain [Unknown]

NARRATIVE: CASE EVENT DATE: 20191201
